FAERS Safety Report 21823088 (Version 1)
Quarter: 2023Q1

REPORT INFORMATION
  Report Type: Spontaneous
  Country: US (occurrence: US)
  Receive Date: 20230105
  Receipt Date: 20230105
  Transmission Date: 20230417
  Serious: No
  Sender: FDA-Public Use
  Company Number: US-HERON THERAPEUTICS, INC-HRTX-2022-000836

PATIENT
  Age: 43 Year
  Sex: Male

DRUGS (1)
  1. ZYNRELEF [Suspect]
     Active Substance: BUPIVACAINE\MELOXICAM
     Indication: Postoperative analgesia
     Dosage: 400-12MG, 14 MILLILITER, SINGLE
     Route: 065
     Dates: start: 20220427, end: 20220427

REACTIONS (2)
  - Wound dehiscence [Recovered/Resolved]
  - Suture related complication [Recovered/Resolved]

NARRATIVE: CASE EVENT DATE: 20220427
